FAERS Safety Report 10929426 (Version 2)
Quarter: 2015Q2

REPORT INFORMATION
  Report Type: Spontaneous
  Country: US (occurrence: US)
  Receive Date: 20150319
  Receipt Date: 20150524
  Transmission Date: 20150821
  Serious: No
  Sender: FDA-Public Use
  Company Number: US-JNJFOC-20130612248

PATIENT
  Age: 8 Year
  Sex: Male
  Weight: 32.66 kg

DRUGS (2)
  1. METHYLPHENIDATE HCL (WATSON) [Suspect]
     Active Substance: METHYLPHENIDATE HYDROCHLORIDE
     Indication: IMPULSE-CONTROL DISORDER
     Route: 048
     Dates: start: 201304
  2. METHYLPHENIDATE HCL (WATSON) [Suspect]
     Active Substance: METHYLPHENIDATE HYDROCHLORIDE
     Indication: IMPULSE-CONTROL DISORDER
     Route: 048
     Dates: start: 2012, end: 201304

REACTIONS (1)
  - Wrong technique in drug usage process [Not Recovered/Not Resolved]

NARRATIVE: CASE EVENT DATE: 201304
